FAERS Safety Report 10634986 (Version 4)
Quarter: 2015Q1

REPORT INFORMATION
  Report Type: Report from Study
  Country: US (occurrence: US)
  Receive Date: 20141205
  Receipt Date: 20150304
  Transmission Date: 20150720
  Serious: Yes (Death, Other)
  Sender: FDA-Public Use
  Company Number: US-SANOFI-AVENTIS-2013SA090041

PATIENT
  Age: 56 Year
  Sex: Female

DRUGS (1)
  1. AUBAGIO [Suspect]
     Active Substance: TERIFLUNOMIDE
     Indication: MULTIPLE SCLEROSIS
     Route: 048
     Dates: start: 20130825, end: 20150225

REACTIONS (18)
  - Weight decreased [Unknown]
  - Chills [Unknown]
  - Memory impairment [Unknown]
  - Nausea [Recovered/Resolved]
  - Arthralgia [Unknown]
  - Sinusitis [Unknown]
  - Cerebrovascular accident [Fatal]
  - Diarrhoea [Not Recovered/Not Resolved]
  - Cystitis [Unknown]
  - Pain [Unknown]
  - Balance disorder [Unknown]
  - Rash pruritic [Unknown]
  - Knee arthroplasty [Unknown]
  - Agitation [Unknown]
  - Dizziness [Unknown]
  - Alopecia [Recovered/Resolved]
  - Headache [Unknown]
  - Musculoskeletal pain [Unknown]

NARRATIVE: CASE EVENT DATE: 2014
